FAERS Safety Report 5057684-7 (Version None)
Quarter: 2006Q3

REPORT INFORMATION
  Report Type: 
  Country: None (occurrence: None)
  Receive Date: 20060721
  Receipt Date: 20060117
  Transmission Date: 20061208
  Serious: No
  Sender: FDA-Public Use
  Company Number: US-GLAXOSMITHKLINE-A0589664A

PATIENT
  Sex: Female

DRUGS (5)
  1. AVANDIA [Suspect]
  2. METFORMIN [Concomitant]
  3. ALTACE [Concomitant]
  4. ZOCOR [Concomitant]
  5. EPIVIR [Concomitant]

REACTIONS (5)
  - ABDOMINAL DISTENSION [None]
  - DECREASED APPETITE [None]
  - DIARRHOEA [None]
  - NAUSEA [None]
  - VOMITING [None]
